FAERS Safety Report 15144461 (Version 1)
Quarter: 2018Q3

REPORT INFORMATION
  Report Type: Spontaneous
  Country: US (occurrence: US)
  Receive Date: 20180713
  Receipt Date: 20180713
  Transmission Date: 20181010
  Serious: Yes (Disabling)
  Sender: FDA-Public Use
  Company Number: US-MYLANLABS-2018M1049563

PATIENT

DRUGS (1)
  1. LEVOTHYROXINE. [Suspect]
     Active Substance: LEVOTHYROXINE
     Indication: HYPOTHYROIDISM
     Dosage: 50 ?G, AM
     Route: 065

REACTIONS (17)
  - Lactation disorder [Unknown]
  - Impaired work ability [Unknown]
  - Ocular hyperaemia [Unknown]
  - Palpitations [Unknown]
  - Pain [Unknown]
  - Condition aggravated [Unknown]
  - Headache [Unknown]
  - Muscle spasms [Unknown]
  - Asthenia [Unknown]
  - Feeling abnormal [Unknown]
  - Eye pain [Unknown]
  - Fatigue [Unknown]
  - Mobility decreased [Unknown]
  - Dry eye [Unknown]
  - Malaise [Unknown]
  - Nausea [Unknown]
  - Vomiting [Unknown]

NARRATIVE: CASE EVENT DATE: 20180630
